FAERS Safety Report 5752938-0 (Version None)
Quarter: 2008Q2

REPORT INFORMATION
  Report Type: 
  Country: None (occurrence: None)
  Receive Date: 20080527
  Receipt Date: 20080516
  Transmission Date: 20081010
  Serious: Yes (Death, Hospitalization)
  Sender: FDA-Public Use
  Company Number: 028-C5013-08042067

PATIENT
  Age: 65 Year
  Sex: Male
  Weight: 68.6 kg

DRUGS (9)
  1. CC-5013  (LENALIDOMIDE) [Suspect]
     Indication: NON-HODGKIN'S LYMPHOMA
     Dosage: 25 MG, OD X21 DAYS / 28 DAY CYCLE, ORAL
     Route: 048
     Dates: start: 20080103, end: 20080430
  2. BISACODYL        (BISACODYL) (SUPPOSITORY) [Concomitant]
  3. LACTULOSE [Concomitant]
  4. LORAZEPAM [Concomitant]
  5. RABEPRAZOLE SODIUM [Concomitant]
  6. MORPHINE [Concomitant]
  7. ACETAMINOPHEN [Concomitant]
  8. GRAVOL (CIMENHYDRINATE) [Concomitant]
  9. MORPHINE SULFATE [Concomitant]
     Dosage: 2.5-5MG Q3H PRN
     Route: 058

REACTIONS (19)
  - ABDOMINAL DISTENSION [None]
  - ABDOMINAL MASS [None]
  - DIARRHOEA [None]
  - FLATULENCE [None]
  - HAEMOGLOBIN DECREASED [None]
  - HYDRONEPHROSIS [None]
  - ILEUS [None]
  - INGUINAL MASS [None]
  - METASTASES TO ABDOMINAL WALL [None]
  - METASTASES TO BONE [None]
  - METASTASES TO DIAPHRAGM [None]
  - METASTASES TO GASTROINTESTINAL TRACT [None]
  - METASTASES TO LIVER [None]
  - METASTASES TO PLEURA [None]
  - NAUSEA [None]
  - NO THERAPEUTIC RESPONSE [None]
  - PLATELET COUNT DECREASED [None]
  - URETERIC OBSTRUCTION [None]
  - WHITE BLOOD CELL COUNT DECREASED [None]
